FAERS Safety Report 8953004 (Version 3)
Quarter: 2013Q2

REPORT INFORMATION
  Report Type: Report from Study
  Country: BE (occurrence: BE)
  Receive Date: 20121205
  Receipt Date: 20130604
  Transmission Date: 20140414
  Serious: Yes (Hospitalization)
  Sender: FDA-Public Use
  Company Number: BE-ABBOTT-12P-013-1014344-00

PATIENT
  Age: 62 Year
  Sex: Male
  Weight: 109 kg

DRUGS (5)
  1. HUMIRA [Suspect]
     Indication: RHEUMATOID ARTHRITIS
     Dates: start: 201005
  2. BISOPROLOL [Concomitant]
     Indication: PRODUCT USED FOR UNKNOWN INDICATION
     Dates: start: 2004
  3. ACETYLSALICYLZUUR [Concomitant]
     Indication: CARDIAC DISORDER
     Dates: start: 2004
  4. ACETYLSALICYLZUUR [Concomitant]
     Indication: PROPHYLAXIS
  5. METHOTREXATE [Concomitant]
     Indication: ARTHRITIS

REACTIONS (1)
  - Vertigo [Recovered/Resolved]
